FAERS Safety Report 11080716 (Version 1)
Quarter: 2015Q2

REPORT INFORMATION
  Report Type: Spontaneous
  Country: US (occurrence: None)
  Receive Date: 20150430
  Receipt Date: 20150430
  Transmission Date: 20150821
  Serious: Yes (Other)
  Sender: FDA-Public Use
  Company Number: None

PATIENT
  Age: 68 Year
  Sex: Female
  Weight: 63.5 kg

DRUGS (6)
  1. ALWAYS EYE DROPS [Concomitant]
  2. AMOUROR THYROID [Concomitant]
  3. SOOLANTRA [Suspect]
     Active Substance: IVERMECTIN
     Indication: ROSACEA
     Dosage: PEA SIZED AMOUNT OF CREAM, APPLIED TO A SURFACE, USUALLY THE SKIN.
     Dates: start: 20150424, end: 20150427
  4. GABAPENTIN. [Concomitant]
     Active Substance: GABAPENTIN
  5. NATURAL HRT [Concomitant]
  6. ZOLOFT 50 MG [Concomitant]

REACTIONS (2)
  - Underdose [None]
  - Pruritus [None]

NARRATIVE: CASE EVENT DATE: 20150426
